FAERS Safety Report 7395274-1 (Version None)
Quarter: 2011Q2

REPORT INFORMATION
  Report Type: 
  Country: None (occurrence: None)
  Receive Date: 20110405
  Receipt Date: 20110401
  Transmission Date: 20111010
  Serious: No
  Sender: FDA-Public Use
  Company Number: US-PFIZER INC-2011057199

PATIENT
  Sex: Female

DRUGS (3)
  1. CHANTIX [Suspect]
     Dosage: 1 MG, 2X/DAY
     Route: 048
  2. CHANTIX [Suspect]
     Indication: SMOKING CESSATION THERAPY
     Dosage: UNK
  3. CADUET [Concomitant]
     Dosage: 5/20 MG

REACTIONS (5)
  - MEMORY IMPAIRMENT [None]
  - TENSION HEADACHE [None]
  - POOR QUALITY SLEEP [None]
  - SOMNOLENCE [None]
  - FATIGUE [None]
